FAERS Safety Report 6834158-1 (Version None)
Quarter: 2010Q3

REPORT INFORMATION
  Report Type: 
  Country: None (occurrence: None)
  Receive Date: 20100712
  Receipt Date: 20070606
  Transmission Date: 20110219
  Serious: Yes (Other)
  Sender: FDA-Public Use
  Company Number: US-PFIZER INC-2007030182

PATIENT
  Sex: Male
  Weight: 95.454 kg

DRUGS (6)
  1. CHANTIX [Suspect]
     Indication: SMOKING CESSATION THERAPY
     Dosage: EVERYDAY
     Route: 048
     Dates: start: 20070320, end: 20070501
  2. AMBIEN [Concomitant]
     Dosage: 10 MG
  3. DOXYCYCLINE [Concomitant]
  4. ZOCOR [Concomitant]
     Dosage: 80 MG
  5. GLIPIZIDE [Concomitant]
     Dosage: 5 MG
  6. LEXAPRO [Concomitant]

REACTIONS (6)
  - ABNORMAL DREAMS [None]
  - DISTURBANCE IN ATTENTION [None]
  - DIZZINESS [None]
  - GAIT DISTURBANCE [None]
  - HALLUCINATION, VISUAL [None]
  - NAUSEA [None]
